FAERS Safety Report 6581879-4 (Version None)
Quarter: 2010Q1

REPORT INFORMATION
  Report Type: 
  Country: None (occurrence: None)
  Receive Date: 20100212
  Receipt Date: 20100212
  Transmission Date: 20100710
  Serious: Yes (Life-Threatening)
  Sender: FDA-Public Use
  Company Number: None

PATIENT
  Age: 61 Year
  Sex: Female
  Weight: 92.12 kg

DRUGS (1)
  1. LORAZEPAM [Suspect]
     Indication: ANXIETY
     Dosage: 1MG MG ONCE IV
     Route: 042
     Dates: start: 20090514, end: 20090514

REACTIONS (3)
  - HYPERTENSION [None]
  - HYPOTENSION [None]
  - STRIDOR [None]
